FAERS Safety Report 5905367-0 (Version None)
Quarter: 2008Q4

REPORT INFORMATION
  Report Type: 
  Country: None (occurrence: None)
  Receive Date: 20081001
  Receipt Date: 20080919
  Transmission Date: 20090506
  Serious: Yes (Other)
  Sender: FDA-Public Use
  Company Number: US-PFIZER INC-2008079743

PATIENT
  Sex: Female
  Weight: 61.2 kg

DRUGS (7)
  1. NEURONTIN [Suspect]
     Indication: NERVOUS SYSTEM DISORDER
  2. ZOLOFT [Suspect]
     Indication: DEPRESSION
  3. CHANTIX [Suspect]
     Indication: SMOKING CESSATION THERAPY
     Route: 048
     Dates: start: 20080801, end: 20080918
  4. TOPAMAX [Concomitant]
  5. LORAZEPAM [Concomitant]
  6. OXYCODONE HCL [Concomitant]
  7. L-DOPA [Concomitant]

REACTIONS (9)
  - DEPRESSION [None]
  - FEELING ABNORMAL [None]
  - GASTROOESOPHAGEAL REFLUX DISEASE [None]
  - MEDICATION ERROR [None]
  - MORBID THOUGHTS [None]
  - NAUSEA [None]
  - STRESS [None]
  - TREMOR [None]
  - WEIGHT INCREASED [None]
